FAERS Safety Report 5963068-7 (Version None)
Quarter: 2008Q4

REPORT INFORMATION
  Report Type: 
  Country: None (occurrence: None)
  Receive Date: 20081124
  Receipt Date: 20081112
  Transmission Date: 20090506
  Serious: Yes (Other)
  Sender: FDA-Public Use
  Company Number: US-ROCHE-597152

PATIENT
  Age: 77 Year
  Sex: Female

DRUGS (1)
  1. BONIVA [Suspect]
     Indication: OSTEOPOROSIS
     Dosage: FORM: PREFILLED SYRINGE, DOSE 3MG/ 3 ML
     Route: 042
     Dates: end: 20070101

REACTIONS (1)
  - LOWER LIMB FRACTURE [None]
